FAERS Safety Report 23133931 (Version 1)
Quarter: 2023Q4

REPORT INFORMATION
  Report Type: Spontaneous
  Country: US (occurrence: None)
  Receive Date: 20231031
  Receipt Date: 20231031
  Transmission Date: 20240109
  Serious: Yes (unspecified)
  Sender: FDA-Public Use
  Company Number: None

PATIENT
  Age: 69 Year
  Sex: Female
  Weight: 72.6 kg

DRUGS (1)
  1. LACTATED RINGERS SOLUTION [Suspect]
     Active Substance: CALCIUM CHLORIDE\POTASSIUM CHLORIDE\SODIUM CHLORIDE\SODIUM LACTATE
     Dosage: OTHER FREQUENCY : ONCE;?
     Route: 042
     Dates: start: 20231031, end: 20231031

REACTIONS (1)
  - Injection site erythema [None]

NARRATIVE: CASE EVENT DATE: 20231031
